FAERS Safety Report 8952854 (Version 1)
Quarter: 2012Q4

REPORT INFORMATION
  Report Type: 
  Country: CN (occurrence: CN)
  Receive Date: 20121203
  Receipt Date: 20121203
  Transmission Date: 20130627
  Serious: Yes (Other)
  Sender: FDA-Public Use
  Company Number: PHHY2012CN107169

PATIENT
  Age: 70 Year
  Sex: Male
  Weight: 48 kg

DRUGS (1)
  1. TEGRETOL [Suspect]
     Indication: NEUROPATHY PERIPHERAL
     Dosage: 0.1 g, TID
     Route: 048
     Dates: start: 20090907, end: 20091012

REACTIONS (5)
  - White blood cell count decreased [Recovered/Resolved]
  - Lung infection [Recovered/Resolved]
  - Productive cough [Recovered/Resolved]
  - Chest discomfort [Recovered/Resolved]
  - Rales [Recovered/Resolved]
